FAERS Safety Report 4309932-6 (Version None)
Quarter: 2004Q1

REPORT INFORMATION
  Report Type: 
  Country: None (occurrence: None)
  Receive Date: 20040303
  Receipt Date: 20040129
  Transmission Date: 20041129
  Serious: No
  Sender: FDA-Public Use
  Company Number: US-BRISTOL-MYERS SQUIBB COMPANY-12491858

PATIENT
  Age: 83 Year
  Sex: Female

DRUGS (3)
  1. ABILIFY [Suspect]
     Indication: DEMENTIA ALZHEIMER'S TYPE
     Route: 048
     Dates: end: 20040126
  2. AMANTADINE HCL [Interacting]
     Indication: INFLUENZA IMMUNISATION
     Route: 048
     Dates: start: 20040123, end: 20040126
  3. DIGOXIN [Concomitant]

REACTIONS (2)
  - DRUG INTERACTION [None]
  - EXTRAPYRAMIDAL DISORDER [None]
